FAERS Safety Report 7410460-X (Version None)
Quarter: 2011Q2

REPORT INFORMATION
  Report Type: 
  Country: None (occurrence: None)
  Receive Date: 20110413
  Receipt Date: 20110404
  Transmission Date: 20111010
  Serious: Yes (Hospitalization)
  Sender: FDA-Public Use
  Company Number: US-BIOGENIDEC-2011BI012777

PATIENT
  Age: 69 Year
  Sex: Female

DRUGS (3)
  1. INSULIN (NOS) [Concomitant]
     Indication: DIABETES MELLITUS
  2. TYSABRI [Suspect]
     Indication: MULTIPLE SCLEROSIS
     Route: 042
     Dates: start: 20090331, end: 20110117
  3. DIABETIC DRUGS (NOS) [Concomitant]
     Indication: DIABETES MELLITUS

REACTIONS (1)
  - DIABETES MELLITUS INADEQUATE CONTROL [None]
